FAERS Safety Report 8191977-X (Version None)
Quarter: 2012Q1

REPORT INFORMATION
  Report Type: 
  Country: None (occurrence: None)
  Receive Date: 20120307
  Receipt Date: 20120301
  Transmission Date: 20120608
  Serious: Yes (Other)
  Sender: FDA-Public Use
  Company Number: PHEH2010US03419

PATIENT
  Sex: Female

DRUGS (13)
  1. AREDIA [Suspect]
  2. ZOMETA [Suspect]
     Indication: OSTEOPOROSIS
     Dates: end: 20080215
  3. COUMADIN [Concomitant]
  4. CALCIUM [Concomitant]
  5. ASPIRIN [Concomitant]
     Dosage: 81 MG,
  6. ZOMETA [Suspect]
     Indication: METASTASES TO BONE
  7. FASLODEX [Concomitant]
     Dosage: 500 MG, QMO
  8. FEMARA [Concomitant]
  9. CELEBREX [Concomitant]
     Dosage: 200 MG, QD
  10. ZOLOFT [Concomitant]
  11. PROVIGIL [Concomitant]
     Dosage: 200 MG, PRN
  12. ZOMETA [Suspect]
     Indication: BREAST CANCER
  13. HERCEPTIN [Concomitant]

REACTIONS (43)
  - FACET JOINT SYNDROME [None]
  - BRONCHITIS [None]
  - ATELECTASIS [None]
  - RASH [None]
  - PHLEBITIS [None]
  - OSTEONECROSIS OF JAW [None]
  - TACHYCARDIA [None]
  - COLONIC POLYP [None]
  - LUNG INFILTRATION [None]
  - PLEURAL EFFUSION [None]
  - ARTHRALGIA [None]
  - OVERDOSE [None]
  - NEPHROLITHIASIS [None]
  - GRANULOMA [None]
  - INJURY [None]
  - PHYSICAL DISABILITY [None]
  - LUNG NEOPLASM [None]
  - INFECTION [None]
  - PAIN [None]
  - PULMONARY FIBROSIS [None]
  - DYSURIA [None]
  - HEPATIC CYST [None]
  - HEPATIC LESION [None]
  - SPINAL OSTEOARTHRITIS [None]
  - DEFORMITY [None]
  - ANXIETY [None]
  - CHEST PAIN [None]
  - COUGH [None]
  - HAEMANGIOMA OF LIVER [None]
  - EMPHYSEMA [None]
  - VERTEBRAL FORAMINAL STENOSIS [None]
  - EXCESSIVE GRANULATION TISSUE [None]
  - STOMATITIS [None]
  - SINUS DISORDER [None]
  - CONSTIPATION [None]
  - AORTIC CALCIFICATION [None]
  - VITAMIN D DECREASED [None]
  - INTERVERTEBRAL DISC DEGENERATION [None]
  - BRONCHOSPASM [None]
  - PRIMARY SEQUESTRUM [None]
  - BACTERIAL DISEASE CARRIER [None]
  - BRONCHIAL WALL THICKENING [None]
  - DYSPNOEA [None]
